FAERS Safety Report 23416440 (Version 1)
Quarter: 2024Q1

REPORT INFORMATION
  Report Type: Spontaneous
  Country: US (occurrence: US)
  Receive Date: 20240118
  Receipt Date: 20240118
  Transmission Date: 20240410
  Serious: Yes (Other)
  Sender: FDA-Public Use
  Company Number: US-BAYER-2024A004079

PATIENT
  Age: 44 Year
  Sex: Male

DRUGS (2)
  1. JIVI [Suspect]
     Active Substance: DAMOCTOCOG ALFA PEGOL
     Indication: Factor VIII deficiency
     Dosage: 3000 IU, BIW
     Route: 042
     Dates: start: 202303
  2. CELECOXIB [Concomitant]
     Active Substance: CELECOXIB

REACTIONS (3)
  - Pharyngeal haemorrhage [None]
  - Cough [None]
  - Weight increased [None]

NARRATIVE: CASE EVENT DATE: 20240101
